FAERS Safety Report 4470134-4 (Version None)
Quarter: 2004Q3

REPORT INFORMATION
  Report Type: 
  Country: None (occurrence: None)
  Receive Date: 20040910
  Receipt Date: 20040715
  Transmission Date: 20050211
  Serious: No
  Sender: FDA-Public Use
  Company Number: 2004224704US

PATIENT
  Age: 65 Year
  Sex: Male
  Weight: 83.9 kg

DRUGS (2)
  1. BEXTRA [Suspect]
     Dosage: 10 MG, QD, ORAL
     Route: 048
     Dates: start: 20040714
  2. SOLU-CORTEF [Suspect]
     Dosage: SINGLE
     Dates: start: 20040713, end: 20040713

REACTIONS (1)
  - RESTLESS LEGS SYNDROME [None]
